FAERS Safety Report 8912331 (Version 1)
Quarter: 2012Q4

REPORT INFORMATION
  Report Type: 
  Country: DE (occurrence: DE)
  Receive Date: 20121116
  Receipt Date: 20121116
  Transmission Date: 20130627
  Serious: Yes (Other)
  Sender: FDA-Public Use
  Company Number: DE-ASTRAZENECA-2012SE72457

PATIENT
  Sex: Male
  Weight: 83 kg

DRUGS (4)
  1. CASODEX [Suspect]
     Indication: PROSTATE CANCER
     Route: 048
     Dates: start: 2010, end: 201203
  2. CASODEX [Suspect]
     Indication: PROSTATE CANCER
     Route: 048
     Dates: start: 201208
  3. NOLVADEX [Suspect]
     Indication: BREAST DISORDER
     Route: 048
     Dates: start: 201209
  4. NOLVADEX [Suspect]
     Indication: BREAST SWELLING
     Route: 048
     Dates: start: 201209

REACTIONS (3)
  - Breast disorder [Recovered/Resolved]
  - Breast swelling [Recovered/Resolved]
  - Off label use [Unknown]
